FAERS Safety Report 14844040 (Version 1)
Quarter: 2018Q2

REPORT INFORMATION
  Report Type: Report from Study
  Country: US (occurrence: US)
  Receive Date: 20180503
  Receipt Date: 20180503
  Transmission Date: 20180711
  Serious: Yes (Hospitalization)
  Sender: FDA-Public Use
  Company Number: US-BAYER-2018-081209

PATIENT
  Age: 13 Year
  Sex: Female

DRUGS (16)
  1. VASOTEC [Concomitant]
     Active Substance: ENALAPRIL MALEATE
  2. VENTOLIN [Concomitant]
     Active Substance: ALBUTEROL SULFATE
  3. FAMOTIDINE. [Concomitant]
     Active Substance: FAMOTIDINE
  4. ESCITALOPRAM [Concomitant]
     Active Substance: ESCITALOPRAM OXALATE
  5. NEXAVAR [Suspect]
     Active Substance: SORAFENIB
     Indication: ACUTE MYELOID LEUKAEMIA
     Dosage: 200 MG, BID
     Route: 048
     Dates: start: 20170725
  6. CYPROHEPTADINE. [Concomitant]
     Active Substance: CYPROHEPTADINE
  7. ZOVIRAX [Concomitant]
     Active Substance: ACYCLOVIR
  8. SEPTRA [Concomitant]
     Active Substance: SULFAMETHOXAZOLE\TRIMETHOPRIM
  9. ENALAPRIL [Concomitant]
     Active Substance: ENALAPRIL
  10. PANTOPRAZOLE [Concomitant]
     Active Substance: PANTOPRAZOLE
  11. FLOVENT [Concomitant]
     Active Substance: FLUTICASONE PROPIONATE
  12. FLUCONAZOLE. [Concomitant]
     Active Substance: FLUCONAZOLE
  13. DEXAMETHASONE. [Concomitant]
     Active Substance: DEXAMETHASONE
  14. VITAMIN D [Concomitant]
     Active Substance: CHOLECALCIFEROL
  15. LEVOFLOXACIN. [Concomitant]
     Active Substance: LEVOFLOXACIN
  16. VORICONAZOLE. [Concomitant]
     Active Substance: VORICONAZOLE

REACTIONS (4)
  - Hospitalisation [Not Recovered/Not Resolved]
  - Off label use [None]
  - Drug administered to patient of inappropriate age [None]
  - Product use in unapproved indication [None]

NARRATIVE: CASE EVENT DATE: 20170725
